FAERS Safety Report 9016527 (Version 2)
Quarter: 2013Q1

REPORT INFORMATION
  Report Type: Spontaneous
  Country: IN (occurrence: IN)
  Receive Date: 20130116
  Receipt Date: 20130207
  Transmission Date: 20140127
  Serious: Yes (Death, Other)
  Sender: FDA-Public Use
  Company Number: IN-ELI_LILLY_AND_COMPANY-IN201301002356

PATIENT
  Age: 80 Year
  Sex: Male

DRUGS (3)
  1. FORTEO [Suspect]
     Indication: OSTEOPOROSIS
     Dosage: 20 UG, QD
     Route: 058
     Dates: start: 20121221
  2. CALCIUM [Concomitant]
  3. VITAMIN D [Concomitant]

REACTIONS (1)
  - Cardiac arrest [Fatal]
